FAERS Safety Report 10342025 (Version 1)
Quarter: 2014Q3

REPORT INFORMATION
  Report Type: Spontaneous
  Country: US (occurrence: None)
  Receive Date: 20140724
  Receipt Date: 20140724
  Transmission Date: 20150326
  Serious: Yes (Other)
  Sender: FDA-Public Use
  Company Number: None

PATIENT
  Age: 63 Year
  Sex: Female
  Weight: 54.43 kg

DRUGS (2)
  1. LEVAQUIN [Suspect]
     Active Substance: LEVOFLOXACIN
     Indication: DIVERTICULITIS
     Route: 048
     Dates: start: 20051110, end: 20051214
  2. FLAGYL [Suspect]
     Active Substance: METRONIDAZOLE\METRONIDAZOLE HYDROCHLORIDE
     Indication: DIVERTICULITIS
     Route: 048
     Dates: start: 20051110, end: 20051214

REACTIONS (17)
  - Neoplasm [None]
  - Dry mouth [None]
  - Insomnia [None]
  - Asthenia [None]
  - Night sweats [None]
  - Tremor [None]
  - Dizziness [None]
  - Anxiety [None]
  - Abdominal pain [None]
  - Weight decreased [None]
  - Vision blurred [None]
  - Pain in extremity [None]
  - Neck pain [None]
  - Tendonitis [None]
  - Dry eye [None]
  - Headache [None]
  - Nausea [None]

NARRATIVE: CASE EVENT DATE: 20051110
